FAERS Safety Report 9897160 (Version 2)
Quarter: 2014Q1

REPORT INFORMATION
  Report Type: Report from Study
  Country: TR (occurrence: TR)
  Receive Date: 20140214
  Receipt Date: 20140214
  Transmission Date: 20141002
  Serious: Yes (Hospitalization)
  Sender: FDA-Public Use
  Company Number: TR-BRISTOL-MYERS SQUIBB COMPANY-19896927

PATIENT
  Age: 84 Year
  Sex: Female

DRUGS (8)
  1. COUMADIN [Suspect]
     Indication: ATRIAL FIBRILLATION
     Dosage: 1DF= 20MG FOR 6DAYS,10MG FOR THE FOLLOWING DAY.?2.5MG FOR ONE DAY AND 1.25 MG FOR OTHER DAY
     Route: 048
  2. DIGOXIN [Suspect]
     Indication: ATRIAL FIBRILLATION
  3. BELOC [Suspect]
     Indication: ATRIAL FIBRILLATION
  4. ALDACTONE [Concomitant]
  5. VASTAREL [Concomitant]
  6. IRBESARTAN + HCTZ [Concomitant]
     Dosage: 1DF-300 MG/12.5 MG
  7. NORVASC [Concomitant]
  8. MONODUR [Concomitant]

REACTIONS (3)
  - Blood pressure inadequately controlled [Unknown]
  - Petechiae [Unknown]
  - Contusion [Unknown]
